FAERS Safety Report 8620413-1 (Version None)
Quarter: 2012Q3

REPORT INFORMATION
  Report Type: 
  Country: None (occurrence: None)
  Receive Date: 20120824
  Receipt Date: 20120816
  Transmission Date: 20120928
  Serious: Yes (Other)
  Sender: FDA-Public Use
  Company Number: FR-GLAXOSMITHKLINE-B0823126A

PATIENT
  Sex: Male
  Weight: 13.5 kg

DRUGS (1)
  1. MALARONE [Suspect]
     Indication: MALARIA PROPHYLAXIS
     Dosage: 250MG PER DAY
     Route: 048
     Dates: start: 20120726, end: 20120801

REACTIONS (3)
  - ACCIDENTAL OVERDOSE [None]
  - DRUG DISPENSING ERROR [None]
  - DIARRHOEA [None]
